FAERS Safety Report 18354958 (Version 2)
Quarter: 2020Q4

REPORT INFORMATION
  Report Type: Spontaneous
  Country: US (occurrence: US)
  Receive Date: 20201007
  Receipt Date: 20201009
  Transmission Date: 20210114
  Serious: No
  Sender: FDA-Public Use
  Company Number: US-PFIZER INC-2020385784

PATIENT
  Age: 16 Year
  Sex: Female
  Weight: 56.7 kg

DRUGS (2)
  1. TAPAZOLE [Suspect]
     Active Substance: METHIMAZOLE
     Indication: BASEDOW^S DISEASE
     Dosage: UNK (DOSE IS UNKNOWN OF WHEN SHE FIRST STARTED)
     Dates: start: 201811, end: 201908
  2. TAPAZOLE [Suspect]
     Active Substance: METHIMAZOLE
     Dosage: 5 MG, 2X/DAY (5MG 1 TABLET BY MOUTH TWICE A DAY)
     Route: 048
     Dates: start: 20190506

REACTIONS (4)
  - Drug hypersensitivity [Unknown]
  - Skin irritation [Unknown]
  - Pruritus [Unknown]
  - Urticaria [Unknown]

NARRATIVE: CASE EVENT DATE: 201905
